APPROVED DRUG PRODUCT: CAPITAL SOLEIL 15
Active Ingredient: AVOBENZONE; ECAMSULE; OCTOCRYLENE
Strength: 2%;3%;10%
Dosage Form/Route: CREAM;TOPICAL
Application: N021501 | Product #001
Applicant: LOREAL USA PRODUCTS INC
Approved: Oct 2, 2006 | RLD: Yes | RS: Yes | Type: OTC